FAERS Safety Report 8073514-3 (Version None)
Quarter: 2012Q1

REPORT INFORMATION
  Report Type: 
  Country: None (occurrence: None)
  Receive Date: 20120126
  Receipt Date: 20120120
  Transmission Date: 20120608
  Serious: No
  Sender: FDA-Public Use
  Company Number: US-BAYER-2012-008026

PATIENT

DRUGS (1)
  1. ALEVE (CAPLET) [Suspect]
     Dosage: 2 U, UNK
     Route: 048
     Dates: start: 20120120

REACTIONS (1)
  - THERAPEUTIC RESPONSE DECREASED [None]
